FAERS Safety Report 17986119 (Version 1)
Quarter: 2020Q3

REPORT INFORMATION
  Report Type: Spontaneous
  Country: US (occurrence: US)
  Receive Date: 20200707
  Receipt Date: 20200707
  Transmission Date: 20201103
  Serious: No
  Sender: FDA-Public Use
  Company Number: US-ALEMBIC PHARMACUETICALS LIMITED-2020SCAL000283

PATIENT

DRUGS (1)
  1. FLUOXETINE HYDROCHLORIDE. [Suspect]
     Active Substance: FLUOXETINE HYDROCHLORIDE
     Indication: PRODUCT USED FOR UNKNOWN INDICATION
     Dosage: UNK

REACTIONS (7)
  - Illness [Unknown]
  - Diarrhoea [Unknown]
  - Product substitution issue [Unknown]
  - Sleep disorder [Unknown]
  - Thinking abnormal [None]
  - Abdominal pain upper [Unknown]
  - Toxicity to various agents [Unknown]
